FAERS Safety Report 9818718 (Version 1)
Quarter: 2014Q1

REPORT INFORMATION
  Report Type: Spontaneous
  Country: US (occurrence: None)
  Receive Date: 20140114
  Receipt Date: 20140114
  Transmission Date: 20141002
  Serious: Yes (Hospitalization)
  Sender: FDA-Public Use
  Company Number: None

PATIENT
  Sex: Female
  Weight: 67.13 kg

DRUGS (3)
  1. LITHIUM CARBONATE ER [Suspect]
     Indication: BIPOLAR I DISORDER
     Dosage: EXTENDED RELEASE TABS.
     Route: 048
     Dates: start: 20131010, end: 20131118
  2. BETOPTIC [Concomitant]
  3. LOSARTAN [Concomitant]

REACTIONS (32)
  - Dizziness [None]
  - Insomnia [None]
  - Headache [None]
  - Blood pressure systolic increased [None]
  - Rash [None]
  - Fatigue [None]
  - Dizziness [None]
  - Diarrhoea [None]
  - Vomiting [None]
  - Nausea [None]
  - Lethargy [None]
  - Heart rate increased [None]
  - Blood creatinine increased [None]
  - Blood urea increased [None]
  - Carbon dioxide decreased [None]
  - White blood cell count increased [None]
  - Blood pressure decreased [None]
  - Renal tubular acidosis [None]
  - Metabolic acidosis [None]
  - Dehydration [None]
  - Renal injury [None]
  - Troponin increased [None]
  - Asthenia [None]
  - Oedema [None]
  - Rash [None]
  - Rash [None]
  - Ejection fraction decreased [None]
  - Mental impairment [None]
  - Erythema multiforme [None]
  - Drug eruption [None]
  - Impaired self-care [None]
  - Slow speech [None]
